FAERS Safety Report 20741339 (Version 1)
Quarter: 2022Q2

REPORT INFORMATION
  Report Type: Spontaneous
  Country: US (occurrence: US)
  Receive Date: 20220422
  Receipt Date: 20220422
  Transmission Date: 20220721
  Serious: No
  Sender: FDA-Public Use
  Company Number: US-PFIZER INC-202200590258

PATIENT

DRUGS (1)
  1. PAXLOVID [Suspect]
     Active Substance: NIRMATRELVIR\RITONAVIR
     Indication: COVID-19 treatment
     Dosage: UNK UNK, 4X/DAY (2 PILLS IN THE MORNING AND 2 AT NIGHT)
     Dates: start: 20220417

REACTIONS (2)
  - Pain [Not Recovered/Not Resolved]
  - Incorrect dose administered [Unknown]
